FAERS Safety Report 8827572 (Version 1)
Quarter: 2012Q4

REPORT INFORMATION
  Report Type: 
  Country: US (occurrence: US)
  Receive Date: 20121005
  Receipt Date: 20121005
  Transmission Date: 20130627
  Serious: Yes (Death)
  Sender: FDA-Public Use
  Company Number: US-ROCHE-1130818

PATIENT
  Sex: Male
  Weight: 87.62 kg

DRUGS (61)
  1. RITUXAN [Suspect]
     Indication: CHRONIC LYMPHOCYTIC LEUKAEMIA
     Route: 042
     Dates: start: 20010604
  2. RITUXAN [Suspect]
     Route: 065
     Dates: start: 20010718
  3. RITUXAN [Suspect]
     Route: 065
     Dates: start: 20010720
  4. RITUXAN [Suspect]
     Route: 065
     Dates: start: 20010723
  5. RITUXAN [Suspect]
     Route: 065
     Dates: start: 20010725
  6. RITUXAN [Suspect]
     Route: 065
     Dates: start: 20010727
  7. RITUXAN [Suspect]
     Route: 065
     Dates: start: 20010730
  8. RITUXAN [Suspect]
     Route: 065
     Dates: start: 20010801
  9. RITUXAN [Suspect]
     Route: 065
     Dates: start: 20010803
  10. RITUXAN [Suspect]
     Route: 065
     Dates: start: 20011108
  11. RITUXAN [Suspect]
     Route: 065
     Dates: start: 20011115
  12. RITUXAN [Suspect]
     Route: 065
     Dates: start: 20011121
  13. RITUXAN [Suspect]
     Route: 065
     Dates: start: 20011128
  14. RITUXAN [Suspect]
     Route: 065
     Dates: start: 20011205
  15. RITUXAN [Suspect]
     Route: 065
     Dates: start: 20011212
  16. RITUXAN [Suspect]
     Route: 065
     Dates: start: 20011219
  17. BENADRYL [Concomitant]
     Route: 065
     Dates: start: 20010718
  18. BENADRYL [Concomitant]
     Route: 065
     Dates: start: 20010720
  19. BENADRYL [Concomitant]
     Route: 065
     Dates: start: 20010723
  20. BENADRYL [Concomitant]
     Route: 065
     Dates: start: 20010725
  21. BENADRYL [Concomitant]
     Route: 065
     Dates: start: 20010727
  22. BENADRYL [Concomitant]
     Route: 065
     Dates: start: 20010730
  23. BENADRYL [Concomitant]
     Route: 065
     Dates: start: 20010801
  24. BENADRYL [Concomitant]
     Route: 065
     Dates: start: 20010803
  25. BENADRYL [Concomitant]
     Route: 065
     Dates: start: 20011108, end: 20011115
  26. DECADRON [Concomitant]
     Route: 065
     Dates: start: 20010718
  27. DECADRON [Concomitant]
     Route: 065
     Dates: start: 20010720
  28. DECADRON [Concomitant]
     Route: 065
     Dates: start: 20010723
  29. DECADRON [Concomitant]
     Route: 065
     Dates: start: 20010725
  30. DECADRON [Concomitant]
     Route: 065
     Dates: start: 20010727
  31. DECADRON [Concomitant]
     Route: 065
     Dates: start: 20010730
  32. DECADRON [Concomitant]
     Route: 065
     Dates: start: 20010801
  33. DECADRON [Concomitant]
     Route: 065
     Dates: start: 20010803
  34. DECADRON [Concomitant]
     Route: 065
     Dates: end: 20011115
  35. TYLENOL [Concomitant]
     Route: 065
     Dates: start: 20010718
  36. TYLENOL [Concomitant]
     Route: 065
     Dates: start: 20010720
  37. TYLENOL [Concomitant]
     Route: 065
     Dates: start: 20010723
  38. TYLENOL [Concomitant]
     Route: 065
     Dates: start: 20010725
  39. TYLENOL [Concomitant]
     Route: 065
     Dates: start: 20010727
  40. TYLENOL [Concomitant]
     Route: 065
     Dates: start: 20010730
  41. TYLENOL [Concomitant]
     Route: 065
     Dates: start: 20010801
  42. TYLENOL [Concomitant]
     Route: 065
     Dates: start: 20010803
  43. TYLENOL [Concomitant]
     Route: 048
     Dates: start: 20011205
  44. TYLENOL [Concomitant]
     Route: 065
     Dates: start: 20011212
  45. TYLENOL [Concomitant]
     Route: 065
     Dates: start: 20011219
  46. LEVAQUIN [Concomitant]
     Route: 065
     Dates: start: 20011115
  47. AUGMENTIN [Concomitant]
     Route: 065
     Dates: start: 20011115, end: 20011115
  48. EPO [Concomitant]
     Dosage: 40 K
     Route: 058
     Dates: start: 20011027
  49. EPO [Concomitant]
     Dosage: 40 K
     Route: 058
     Dates: start: 20011029
  50. EPO [Concomitant]
     Dosage: 40 K
     Route: 058
     Dates: start: 20011108
  51. EPO [Concomitant]
     Dosage: 40 K
     Route: 058
     Dates: start: 20011128
  52. EPO [Concomitant]
     Dosage: 40 K
     Route: 058
     Dates: start: 20011205
  53. EPO [Concomitant]
     Dosage: 40 K
     Route: 058
     Dates: start: 20011212
  54. EPO [Concomitant]
     Dosage: 40 K
     Route: 058
     Dates: start: 20011219
  55. EPO [Concomitant]
     Dosage: 40 K
     Route: 058
     Dates: start: 20011227
  56. EPO [Concomitant]
     Dosage: 40 K
     Route: 058
     Dates: start: 20020103
  57. NORMAL SALINE [Concomitant]
     Dosage: 1000
     Route: 065
  58. PROCRIT [Concomitant]
     Dosage: 40 K
     Route: 058
     Dates: start: 20011121
  59. PROCRIT [Concomitant]
     Dosage: 40000 V
     Route: 058
     Dates: start: 20010502
  60. PHENERGAN [Concomitant]
     Route: 065
     Dates: start: 20011205
  61. CODEINE [Concomitant]
     Route: 065
     Dates: start: 20011205

REACTIONS (6)
  - Death [Fatal]
  - Cough [Unknown]
  - Nausea [Unknown]
  - Diarrhoea [Unknown]
  - Ecchymosis [Unknown]
  - Vomiting [Unknown]
